FAERS Safety Report 22274225 (Version 2)
Quarter: 2023Q2

REPORT INFORMATION
  Report Type: Spontaneous
  Country: US (occurrence: US)
  Receive Date: 20230502
  Receipt Date: 20230607
  Transmission Date: 20230721
  Serious: Yes (Other)
  Sender: FDA-Public Use
  Company Number: US-INTRA-CELLULAR THERAPIES, INC.-2023ICT00560

PATIENT
  Age: 44 Year
  Sex: Female
  Weight: 65.76 kg

DRUGS (14)
  1. CAPLYTA [Suspect]
     Active Substance: LUMATEPERONE
     Indication: Bipolar II disorder
     Dosage: 42 MG, 1X/DAY
     Route: 048
     Dates: start: 20221113, end: 202211
  2. CAPLYTA [Suspect]
     Active Substance: LUMATEPERONE
     Indication: Depression
  3. CAPLYTA [Suspect]
     Active Substance: LUMATEPERONE
     Indication: Bipolar II disorder
     Dosage: 10.5 MG, 1X/DAY
     Route: 048
     Dates: start: 20221130, end: 20221213
  4. CAPLYTA [Suspect]
     Active Substance: LUMATEPERONE
     Indication: Depression
  5. CAPLYTA [Suspect]
     Active Substance: LUMATEPERONE
     Indication: Bipolar II disorder
     Dosage: 21 MG, 1X/DAY
     Route: 048
     Dates: start: 20221214
  6. CAPLYTA [Suspect]
     Active Substance: LUMATEPERONE
     Indication: Depression
  7. VITAMINS NOS [Concomitant]
     Active Substance: VITAMINS
     Dosage: 1 DOSAGE FORM, 1X/DAY
  8. WELLBUTRIN XL [Concomitant]
     Active Substance: BUPROPION HYDROCHLORIDE
     Dosage: 300 MG, 1X/DAY IN THE MORNING
  9. LACTOBAC [LACTOBACILLUS ACIDOPHILUS] [Concomitant]
     Dosage: ^51 BILLION^ (PROBIOTIC ULTRA) 1X/DAY
  10. CHOLECALCIFEROL [Concomitant]
     Active Substance: CHOLECALCIFEROL
     Dosage: 250 ?G, 1X/DAY
     Route: 048
  11. LAMOTRIGINE [Concomitant]
     Active Substance: LAMOTRIGINE
     Dosage: UNK ^TAKEN UP^
  12. LAMOTRIGINE [Concomitant]
     Active Substance: LAMOTRIGINE
     Dosage: 200 MG, 2X/DAY
     Route: 048
  13. LORAZEPAM [Concomitant]
     Active Substance: LORAZEPAM
     Dosage: 0.5 MG, UP TO 3X/DAY AS NEEDED
  14. SPIRONOLACTONE [Concomitant]
     Active Substance: SPIRONOLACTONE
     Dosage: 100 MG, 1X/DAY
     Route: 048

REACTIONS (6)
  - Thrombocytopenia [Recovering/Resolving]
  - Migraine [Recovered/Resolved]
  - Brain fog [Recovered/Resolved]
  - Serum ferritin decreased [Unknown]
  - Vitamin B12 decreased [Unknown]
  - White blood cell count decreased [Unknown]

NARRATIVE: CASE EVENT DATE: 20221101
